FAERS Safety Report 8142013-2 (Version None)
Quarter: 2012Q1

REPORT INFORMATION
  Report Type: 
  Country: None (occurrence: None)
  Receive Date: 20120216
  Receipt Date: 20120214
  Transmission Date: 20120608
  Serious: Yes (Hospitalization)
  Sender: FDA-Public Use
  Company Number: US-B.I. PHARMACEUTICALS,INC./RIDGEFIELD-2012-BP-02904BP

PATIENT
  Sex: Male

DRUGS (9)
  1. PRADAXA [Suspect]
     Indication: ATRIAL FIBRILLATION
     Dosage: 300 MG
     Route: 048
     Dates: start: 20120209
  2. TAMBOCOR [Concomitant]
     Indication: HEART RATE IRREGULAR
     Dosage: 200 MG
     Route: 048
     Dates: start: 20110201, end: 20110321
  3. PRADAXA [Suspect]
     Dosage: 300 MG
     Route: 048
     Dates: start: 20110101, end: 20110301
  4. METOPROLOL TARTRATE [Concomitant]
     Indication: HYPERTENSION
     Dosage: 25 MG
     Route: 048
     Dates: start: 20110101, end: 20110201
  5. ASPIRIN [Concomitant]
     Dosage: 200 MG
     Route: 048
     Dates: start: 20120209
  6. TAMBOCOR [Concomitant]
     Dosage: 200 MG
     Route: 048
     Dates: start: 20120209
  7. ZOCOR [Concomitant]
     Dosage: 20 MG
     Route: 048
  8. ASPIRIN [Concomitant]
     Indication: PROPHYLAXIS
     Dosage: 81 MG
     Route: 048
  9. ZOCOR [Concomitant]
     Dosage: 200 MG
     Route: 048
     Dates: start: 20120209

REACTIONS (1)
  - CARDIAC ABLATION [None]
